FAERS Safety Report 10639566 (Version 5)
Quarter: 2017Q2

REPORT INFORMATION
  Report Type: Report from Study
  Country: PL (occurrence: PL)
  Receive Date: 20141209
  Receipt Date: 20170428
  Transmission Date: 20170829
  Serious: Yes (Hospitalization)
  Sender: FDA-Public Use
  Company Number: PL-ROCHE-1500152

PATIENT
  Age: 67 Year
  Sex: Male
  Weight: 76 kg

DRUGS (43)
  1. MILURIT [Concomitant]
     Active Substance: ALLOPURINOL
     Route: 048
     Dates: start: 20141129, end: 20141221
  2. PARACETAMOL [Concomitant]
     Active Substance: ACETAMINOPHEN
     Indication: PROPHYLAXIS
     Route: 048
     Dates: start: 20141028, end: 20141029
  3. PARACETAMOL [Concomitant]
     Active Substance: ACETAMINOPHEN
     Route: 048
     Dates: start: 20150119, end: 20150119
  4. DIPHERGAN [Concomitant]
     Route: 048
     Dates: start: 20150318, end: 20150318
  5. AUGMENTIN [Concomitant]
     Active Substance: AMOXICILLIN\CLAVULANATE POTASSIUM
     Route: 048
     Dates: start: 20150414, end: 20150419
  6. MILURIT [Concomitant]
     Active Substance: ALLOPURINOL
     Route: 048
     Dates: start: 20150121
  7. DEXAVEN [Concomitant]
     Active Substance: DEXAMETHASONE
     Indication: PROPHYLAXIS
     Route: 042
     Dates: start: 20141028, end: 20141029
  8. PARACETAMOL [Concomitant]
     Active Substance: ACETAMINOPHEN
     Route: 048
     Dates: start: 20141112, end: 20141112
  9. DIPHERGAN [Concomitant]
     Route: 048
     Dates: start: 20141104, end: 20141104
  10. DIPHERGAN [Concomitant]
     Route: 048
     Dates: start: 20141125, end: 20141125
  11. DIPHERGAN [Concomitant]
     Route: 048
     Dates: start: 20150218, end: 20150218
  12. ONDANSETRON [Concomitant]
     Active Substance: ONDANSETRON
     Indication: PROPHYLAXIS
     Route: 042
     Dates: start: 20141028, end: 20141029
  13. ONDANSETRON [Concomitant]
     Active Substance: ONDANSETRON
     Route: 042
     Dates: start: 20150119, end: 20150120
  14. OBINUTUZUMAB [Suspect]
     Active Substance: OBINUTUZUMAB
     Dosage: FREQUENCY AS PER PROTOCOL: 1000MG SPLIT OVER D1/D2, 1000MG ON D8, D15 OF CYCLE 1. 1000MG ON D1 OF C2
     Route: 042
     Dates: start: 20141029, end: 20141029
  15. OBINUTUZUMAB [Suspect]
     Active Substance: OBINUTUZUMAB
     Dosage: FREQUENCY AS PER PROTOCOL: 1000MG SPLIT OVER D1/D2, 1000MG ON D8, D15 OF CYCLE 1. 1000MG ON D1 OF C2
     Route: 042
     Dates: start: 20141112, end: 20141112
  16. BENDAMUSTINE [Suspect]
     Active Substance: BENDAMUSTINE
     Dosage: FREQUENCY AS PER PROTOCOL: 90MG/M2 ?C2D1. LAST DOSE PRIOR TO ACUTE KIDNEY INJURY ON 26/NOV/2014.
     Route: 042
     Dates: start: 20141125, end: 20141125
  17. MILURIT [Concomitant]
     Active Substance: ALLOPURINOL
     Route: 048
     Dates: start: 20141224, end: 20150118
  18. ONDANSETRON [Concomitant]
     Active Substance: ONDANSETRON
     Route: 042
     Dates: start: 20141125, end: 20141126
  19. PARACETAMOLUM [Concomitant]
     Active Substance: ACETAMINOPHEN
     Indication: PROPHYLAXIS
     Route: 048
     Dates: start: 20150218, end: 20150218
  20. OBINUTUZUMAB [Suspect]
     Active Substance: OBINUTUZUMAB
     Dosage: FREQUENCY AS PER PROTOCOL: 1000MG SPLIT OVER D1/D2, 1000MG ON D8, D15 OF CYCLE 1. 1000MG ON D1 OF C2
     Route: 042
     Dates: start: 20141125, end: 20141125
  21. DIPHERGAN [Concomitant]
     Indication: PROPHYLAXIS
     Route: 048
     Dates: start: 20141028, end: 20141029
  22. DIPHERGAN [Concomitant]
     Route: 048
     Dates: start: 20141222, end: 20141222
  23. POLPRAZOL [Concomitant]
     Active Substance: OMEPRAZOLE
     Indication: PROPHYLAXIS
     Route: 048
     Dates: start: 20141028, end: 20141029
  24. FUROSEMIDUM [Concomitant]
     Active Substance: FUROSEMIDE
     Indication: PROPHYLAXIS
     Route: 042
     Dates: start: 20141027, end: 20141028
  25. OBINUTUZUMAB [Suspect]
     Active Substance: OBINUTUZUMAB
     Indication: CHRONIC LYMPHOCYTIC LEUKAEMIA
     Dosage: FREQUENCY AS PER PROTOCOL: 1000MG SPLIT OVER D1/D2, 1000MG ON D8, D15 OF CYCLE 1. 1000MG ON D1 OF C2
     Route: 042
     Dates: start: 20141028, end: 20141028
  26. BENDAMUSTINE [Suspect]
     Active Substance: BENDAMUSTINE
     Dosage: FREQUENCY AS PER PROTOCOL: 90MG/M2 ?C2D2. LAST DOSE PRIOR TO ACUTE KIDNEY INJURY ON 26/NOV/2014.
     Route: 042
     Dates: start: 20141126, end: 20141126
  27. MILURIT [Concomitant]
     Active Substance: ALLOPURINOL
     Route: 048
     Dates: start: 20141030, end: 20141124
  28. PARACETAMOL [Concomitant]
     Active Substance: ACETAMINOPHEN
     Route: 048
     Dates: start: 20141104, end: 20141104
  29. ZOFRAN [Concomitant]
     Active Substance: ONDANSETRON HYDROCHLORIDE
     Indication: PROPHYLAXIS
     Route: 042
     Dates: start: 20150318, end: 20150319
  30. BENDAMUSTINE [Suspect]
     Active Substance: BENDAMUSTINE
     Indication: CHRONIC LYMPHOCYTIC LEUKAEMIA
     Dosage: FREQUENCY AS PER PROTOCOL: 90MG/M2. LIQUID CONCENTRATE 168MG/500ML?C1D1. LAST DOSE PRIOR TO ACUTE KI
     Route: 042
     Dates: start: 20141028, end: 20141028
  31. PARACETAMOL [Concomitant]
     Active Substance: ACETAMINOPHEN
     Route: 048
     Dates: start: 20141222, end: 20141222
  32. DIPHERGAN [Concomitant]
     Route: 048
     Dates: start: 20150119, end: 20150119
  33. DEXAMETHASON [Concomitant]
     Active Substance: DEXAMETHASONE
     Indication: PROPHYLAXIS
     Route: 048
     Dates: start: 20141027, end: 20141027
  34. BENDAMUSTINE [Suspect]
     Active Substance: BENDAMUSTINE
     Dosage: FREQUENCY AS PER PROTOCOL: 90MG/M2 ?C1D2. LAST DOSE PRIOR TO ACUTE KIDNEY INJURY ON 26/NOV/2014.
     Route: 042
     Dates: start: 20141029, end: 20141029
  35. AMLODIPINE [Concomitant]
     Active Substance: AMLODIPINE BESYLATE
     Route: 048
     Dates: start: 2004
  36. MILURIT [Concomitant]
     Active Substance: ALLOPURINOL
     Indication: PROPHYLAXIS
     Route: 048
     Dates: start: 20141027, end: 20141027
  37. OMEPRAZOLE. [Concomitant]
     Active Substance: OMEPRAZOLE
     Indication: PROPHYLAXIS
     Route: 048
     Dates: start: 20150119, end: 20150120
  38. PANTOPRAZOLE [Concomitant]
     Active Substance: PANTOPRAZOLE
     Indication: PROPHYLAXIS
     Route: 048
     Dates: start: 20150121
  39. OBINUTUZUMAB [Suspect]
     Active Substance: OBINUTUZUMAB
     Dosage: FREQUENCY AS PER PROTOCOL: 1000MG SPLIT OVER D1/D2, 1000MG ON D8, D15 OF CYCLE 1. 1000MG ON D1 OF C2
     Route: 042
     Dates: start: 20141104, end: 20141104
  40. EUTHYROX [Concomitant]
     Active Substance: LEVOTHYROXINE SODIUM
     Indication: HYPOTHYROIDISM
     Dosage: DOSE: 125 UG
     Route: 048
     Dates: start: 2007
  41. PARACETAMOL [Concomitant]
     Active Substance: ACETAMINOPHEN
     Route: 048
     Dates: start: 20141125, end: 20141125
  42. ONDANSETRON [Concomitant]
     Active Substance: ONDANSETRON
     Route: 042
     Dates: start: 20141222, end: 20141223
  43. PARACETAMOLUM [Concomitant]
     Active Substance: ACETAMINOPHEN
     Route: 048
     Dates: start: 20150318, end: 20150318

REACTIONS (1)
  - Acute kidney injury [Recovered/Resolved]

NARRATIVE: CASE EVENT DATE: 20141126
